FAERS Safety Report 6231652-1 (Version None)
Quarter: 2009Q2

REPORT INFORMATION
  Report Type: 
  Country: None (occurrence: None)
  Receive Date: 20090611
  Receipt Date: 20090603
  Transmission Date: 20091009
  Serious: Yes (Hospitalization)
  Sender: FDA-Public Use
  Company Number: LTI2009A00155

PATIENT
  Age: 71 Year
  Sex: Female

DRUGS (7)
  1. ACTOS [Suspect]
     Indication: DIABETES MELLITUS
     Dosage: 30 MG (30 MG, 1 IN 1 D) ORAL, 15 MG (15 MG, 1 IN 1 D) ORAL
     Route: 048
     Dates: start: 20060101, end: 20090416
  2. ACTOS [Suspect]
     Indication: DIABETES MELLITUS
     Dosage: 30 MG (30 MG, 1 IN 1 D) ORAL, 15 MG (15 MG, 1 IN 1 D) ORAL
     Route: 048
     Dates: start: 20060101, end: 20090416
  3. METFORMIN HCL [Suspect]
     Dosage: 3000 MG (1000 MG) ORAL, 2550 MG (850 MG, 3 IN 1 D) ORAL
     Route: 048
     Dates: start: 20060101, end: 20090201
  4. METFORMIN HCL [Suspect]
     Dosage: 3000 MG (1000 MG) ORAL, 2550 MG (850 MG, 3 IN 1 D) ORAL
     Route: 048
     Dates: start: 20090201, end: 20090413
  5. ASPIRIN [Concomitant]
  6. CO-APROVEL (HYDROCHLOROTHIAZIDE, IRBESARTAN) [Concomitant]
  7. CRESTOR [Concomitant]

REACTIONS (10)
  - ANAEMIA FOLATE DEFICIENCY [None]
  - ANAEMIA VITAMIN B12 DEFICIENCY [None]
  - ANOREXIA [None]
  - DIARRHOEA [None]
  - FATIGUE [None]
  - LEUKOPENIA [None]
  - PALLOR [None]
  - THROMBOCYTOPENIA [None]
  - VOMITING [None]
  - WEIGHT DECREASED [None]
